FAERS Safety Report 21790161 (Version 1)
Quarter: 2022Q4

REPORT INFORMATION
  Report Type: Spontaneous
  Country: US (occurrence: US)
  Receive Date: 20221228
  Receipt Date: 20221228
  Transmission Date: 20230113
  Serious: Yes (Life-Threatening, Other)
  Sender: FDA-Public Use
  Company Number: US-BAYER-2022A172806

PATIENT
  Age: 64 Year
  Sex: Female

DRUGS (1)
  1. ALKA-SELTZER PLUS MAXIMUM STRENGTH NIGHT COLD AND FLU POWERMAX GELS [Suspect]
     Active Substance: ACETAMINOPHEN\DEXTROMETHORPHAN HYDROBROMIDE\DOXYLAMINE SUCCINATE\PHENYLEPHRINE HYDROCHLORIDE
     Indication: Sinusitis
     Dosage: 1 DF
     Route: 048
     Dates: start: 20221219, end: 20221219

REACTIONS (6)
  - Choking [Recovering/Resolving]
  - Dyspnoea [Recovering/Resolving]
  - Post-traumatic stress disorder [None]
  - Headache [None]
  - Chest pain [None]
  - Oropharyngeal pain [None]

NARRATIVE: CASE EVENT DATE: 20221219
